FAERS Safety Report 17999873 (Version 1)
Quarter: 2020Q3

REPORT INFORMATION
  Report Type: Spontaneous
  Country: US (occurrence: US)
  Receive Date: 20200709
  Receipt Date: 20200709
  Transmission Date: 20201103
  Serious: Yes (Hospitalization)
  Sender: FDA-Public Use
  Company Number: None

PATIENT
  Age: 29 Year
  Sex: Female
  Weight: 73.35 kg

DRUGS (1)
  1. MONSEL [Suspect]
     Active Substance: FERRIC SUBSULFATE
     Indication: CERVIX HAEMORRHAGE UTERINE
     Dates: start: 20200707

REACTIONS (3)
  - Application site haemorrhage [None]
  - Application site pain [None]
  - Cervix haemorrhage uterine [None]

NARRATIVE: CASE EVENT DATE: 20200707
